FAERS Safety Report 9744112 (Version 1)
Quarter: 2013Q4

REPORT INFORMATION
  Report Type: Spontaneous
  Country: GB (occurrence: GB)
  Receive Date: 20131210
  Receipt Date: 20131210
  Transmission Date: 20140711
  Serious: Yes (Hospitalization)
  Sender: FDA-Public Use
  Company Number: GB-WATSON-2013-22550

PATIENT
  Age: 82 Year
  Sex: Female

DRUGS (1)
  1. IBANDRONIC ACID (UNKNOWN) [Suspect]
     Indication: OSTEOPOROSIS
     Dosage: 150 MG, ONCE A MONTH
     Route: 048

REACTIONS (2)
  - Atypical femur fracture [Recovering/Resolving]
  - Femur fracture [Recovering/Resolving]
